FAERS Safety Report 25868417 (Version 1)
Quarter: 2025Q4

REPORT INFORMATION
  Report Type: Spontaneous
  Country: US (occurrence: None)
  Receive Date: 20251001
  Receipt Date: 20251001
  Transmission Date: 20260117
  Serious: Yes (Other)
  Sender: ENDO
  Company Number: US-ENDO USA, INC.-2025-002018

PATIENT
  Sex: Male

DRUGS (3)
  1. TESTOPEL [Suspect]
     Active Substance: TESTOSTERONE
     Indication: Product used for unknown indication
     Dosage: 15 TO 17 PELLETS, EVERY 3 MONTHS (FOR 15 YEARS)
     Route: 065
  2. TESTOPEL [Suspect]
     Active Substance: TESTOSTERONE
  3. TESTOPEL [Suspect]
     Active Substance: TESTOSTERONE

REACTIONS (2)
  - Prostate cancer [Unknown]
  - Off label use [Unknown]

NARRATIVE: CASE EVENT DATE: 20120101
